FAERS Safety Report 5006047-9 (Version None)
Quarter: 2006Q1

REPORT INFORMATION
  Report Type: 
  Country: None (occurrence: None)
  Receive Date: 20060320
  Receipt Date: 20050427
  Transmission Date: 20060701
  Serious: Yes (Hospitalization, Other)
  Sender: FDA-Public Use
  Company Number: 2004-06-0897

PATIENT
  Sex: Male

DRUGS (6)
  1. PEG-INTRON [Suspect]
     Indication: HEPATITIS C
     Dates: end: 20040724
  2. PEG-INTRON [Suspect]
     Indication: HEPATITIS C
     Dates: end: 20040724
  3. PEG-INTRON [Suspect]
     Indication: HEPATITIS C
  4. REBETOL [Suspect]
     Dosage: ORAL
     Route: 048
     Dates: end: 20040724
  5. REBETOL [Suspect]
     Dosage: ORAL
     Route: 048
     Dates: end: 20040724
  6. REBETOL [Suspect]
     Dosage: ORAL
     Route: 048

REACTIONS (6)
  - DEPRESSION [None]
  - FATIGUE [None]
  - HYPERHIDROSIS [None]
  - LABORATORY TEST ABNORMAL [None]
  - MYALGIA [None]
  - SUICIDAL IDEATION [None]
